FAERS Safety Report 5758354-X (Version None)
Quarter: 2008Q2

REPORT INFORMATION
  Report Type: 
  Country: None (occurrence: None)
  Receive Date: 20080604
  Receipt Date: 20080530
  Transmission Date: 20081010
  Serious: Yes (Disabling)
  Sender: FDA-Public Use
  Company Number: US-ASTRAZENECA-2008UW10961

PATIENT
  Sex: Female

DRUGS (1)
  1. ZOMIG [Suspect]
     Indication: MIGRAINE

REACTIONS (1)
  - DISABILITY [None]
